FAERS Safety Report 9154895 (Version 3)
Quarter: 2013Q2

REPORT INFORMATION
  Report Type: Spontaneous
  Country: JP (occurrence: JP)
  Receive Date: 20130311
  Receipt Date: 20130409
  Transmission Date: 20140414
  Serious: Yes (Death)
  Sender: FDA-Public Use
  Company Number: JP-SANOFI-AVENTIS-2013SA023468

PATIENT
  Age: 64 Year
  Sex: Female

DRUGS (4)
  1. ELPLAT [Suspect]
     Indication: RECTAL CANCER
     Route: 041
     Dates: start: 201010, end: 20130220
  2. CALCIUM LEVOFOLINATE [Suspect]
     Indication: RECTAL CANCER
     Route: 041
     Dates: start: 201010, end: 20130220
  3. 5-FU [Suspect]
     Indication: RECTAL CANCER
     Route: 040
     Dates: start: 201010, end: 20130220
  4. 5-FU [Suspect]
     Indication: RECTAL CANCER
     Route: 041
     Dates: start: 201010, end: 20130220

REACTIONS (1)
  - Cerebral haemorrhage [Fatal]
